FAERS Safety Report 15935169 (Version 3)
Quarter: 2020Q2

REPORT INFORMATION
  Report Type: Spontaneous
  Country: US (occurrence: US)
  Receive Date: 20190207
  Receipt Date: 20200526
  Transmission Date: 20200713
  Serious: Yes (Other)
  Sender: FDA-Public Use
  Company Number: US-ASTRAZENECA-2018SF25698

PATIENT
  Age: 590 Month
  Sex: Male

DRUGS (18)
  1. PROTONIX [Suspect]
     Active Substance: PANTOPRAZOLE SODIUM
     Indication: DYSPEPSIA
     Route: 065
     Dates: start: 20071224, end: 20171231
  2. SIMVASTATIN. [Concomitant]
     Active Substance: SIMVASTATIN
     Indication: BLOOD CHOLESTEROL INCREASED
     Route: 065
     Dates: start: 20080823, end: 20140922
  3. LISINOPRIL. [Concomitant]
     Active Substance: LISINOPRIL
     Indication: HYPERTENSION
     Route: 065
     Dates: start: 20080402, end: 20150605
  4. BUMETANIDE. [Concomitant]
     Active Substance: BUMETANIDE
     Indication: OEDEMA
     Route: 065
     Dates: start: 20110706, end: 20130903
  5. AMOXICILLIN. [Concomitant]
     Active Substance: AMOXICILLIN
     Indication: INFECTION
     Route: 065
     Dates: start: 20110208, end: 20160318
  6. PROTONIX [Suspect]
     Active Substance: PANTOPRAZOLE SODIUM
     Indication: DYSPEPSIA
     Dosage: GENERIC
     Route: 065
     Dates: start: 20080502, end: 20090126
  7. PRILOSEC [Suspect]
     Active Substance: OMEPRAZOLE MAGNESIUM
     Indication: DYSPEPSIA
     Route: 048
     Dates: start: 200712, end: 200712
  8. NEXIUM [Suspect]
     Active Substance: ESOMEPRAZOLE MAGNESIUM
     Indication: DYSPEPSIA
     Route: 048
     Dates: start: 20071115, end: 20120410
  9. CLONIDINE. [Concomitant]
     Active Substance: CLONIDINE
     Route: 065
     Dates: start: 20130314, end: 20150731
  10. HECTOROL [Concomitant]
     Active Substance: DOXERCALCIFEROL
     Route: 065
     Dates: start: 20180704
  11. DEXILANT [Suspect]
     Active Substance: DEXLANSOPRAZOLE
     Indication: DYSPEPSIA
     Route: 065
  12. PROTONIX [Suspect]
     Active Substance: PANTOPRAZOLE SODIUM
     Indication: DYSPEPSIA
     Route: 065
     Dates: start: 200712, end: 200712
  13. HYDRALAZINE [Concomitant]
     Active Substance: HYDRALAZINE HYDROCHLORIDE
     Indication: HYPERTENSION
     Route: 065
     Dates: start: 20140425, end: 20150901
  14. EPOGEN [Concomitant]
     Active Substance: ERYTHROPOIETIN
     Route: 065
     Dates: start: 20180704
  15. PRILOSEC [Suspect]
     Active Substance: OMEPRAZOLE MAGNESIUM
     Indication: DYSPEPSIA
     Route: 048
     Dates: start: 20120101, end: 20171231
  16. PROTONIX [Suspect]
     Active Substance: PANTOPRAZOLE SODIUM
     Indication: DYSPEPSIA
     Dosage: GENERIC
     Route: 065
     Dates: start: 20160623
  17. SPIRONOLACTONE. [Concomitant]
     Active Substance: SPIRONOLACTONE
     Indication: HYPERTENSION
     Route: 065
     Dates: start: 20110706, end: 20141115
  18. AMLODIPINE [Concomitant]
     Active Substance: AMLODIPINE BESYLATE
     Indication: HYPERTENSION
     Route: 065
     Dates: start: 20070908, end: 20141115

REACTIONS (7)
  - Acute kidney injury [Not Recovered/Not Resolved]
  - Chronic kidney disease [Not Recovered/Not Resolved]
  - End stage renal disease [Not Recovered/Not Resolved]
  - Renal failure [Unknown]
  - Hyperphosphataemia [Unknown]
  - Nephrogenic anaemia [Unknown]
  - Hyperparathyroidism secondary [Unknown]

NARRATIVE: CASE EVENT DATE: 201501
